FAERS Safety Report 4713566-9 (Version None)
Quarter: 2005Q3

REPORT INFORMATION
  Report Type: 
  Country: None (occurrence: None)
  Receive Date: 20050712
  Receipt Date: 20050627
  Transmission Date: 20060218
  Serious: Yes (Hospitalization)
  Sender: FDA-Public Use
  Company Number: 2005S1005482

PATIENT
  Age: 65 Year
  Sex: Female

DRUGS (7)
  1. EXTENDED PHENYTOIN SODIUM [Suspect]
     Indication: CONVULSION
     Dosage: 300 MG;QH;PO
     Route: 048
     Dates: start: 20050420, end: 20050621
  2. CARBAMAZEPINE [Concomitant]
  3. ESTROGENS CONJUGATED [Concomitant]
  4. TERIPARATIDE [Concomitant]
  5. RISEDRONATE SODIUM [Concomitant]
  6. FISH OIL [Concomitant]
  7. VITAMINS NOS [Concomitant]

REACTIONS (10)
  - ANTICONVULSANT DRUG LEVEL BELOW THERAPEUTIC [None]
  - CHILLS [None]
  - DISCOMFORT [None]
  - GRAND MAL CONVULSION [None]
  - INSOMNIA [None]
  - MUSCLE STRAIN [None]
  - NAUSEA [None]
  - OSTEOPOROSIS [None]
  - SOMNOLENCE [None]
  - STRESS [None]
